FAERS Safety Report 16400809 (Version 2)
Quarter: 2019Q3

REPORT INFORMATION
  Report Type: Spontaneous
  Country: US (occurrence: US)
  Receive Date: 20190606
  Receipt Date: 20190708
  Transmission Date: 20191004
  Serious: Yes (Hospitalization)
  Sender: FDA-Public Use
  Company Number: US-PFIZER INC-2019200772

PATIENT
  Age: 74 Year
  Sex: Male

DRUGS (3)
  1. PREPARATION H NOS [Suspect]
     Active Substance: COCOA BUTTER\PETROLATUM\PHENYLEPHRINE HYDROCHLORIDE\PHENYLEPHRINE HYDROCHLORIDE OR MINERAL OIL
     Indication: HAEMORRHOIDS
     Dosage: UNK, AS NEEDED
     Dates: start: 2004, end: 2019
  2. PREPARATION H MEDICATED WIPES [Concomitant]
     Active Substance: WITCH HAZEL
     Dosage: UNK
  3. SENSI CARE PROTECTIVE BARRIER [Concomitant]
     Active Substance: PETROLATUM\ZINC OXIDE
     Dosage: UNK
     Dates: start: 201710

REACTIONS (2)
  - Anorectal discomfort [Not Recovered/Not Resolved]
  - Rash [Not Recovered/Not Resolved]

NARRATIVE: CASE EVENT DATE: 201811
